FAERS Safety Report 6278220-3 (Version None)
Quarter: 2009Q3

REPORT INFORMATION
  Report Type: 
  Country: None (occurrence: None)
  Receive Date: 20090720
  Receipt Date: 20090710
  Transmission Date: 20100115
  Serious: Yes (Hospitalization)
  Sender: FDA-Public Use
  Company Number: 2009AL004581

PATIENT
  Age: 6 Year
  Sex: Male

DRUGS (1)
  1. FEVERALL [Suspect]
     Indication: ACCIDENTAL OVERDOSE
     Dosage: 2400 MG; X1; PO
     Route: 048
     Dates: start: 20090615, end: 20090615

REACTIONS (6)
  - ABDOMINAL PAIN UPPER [None]
  - ACCIDENTAL EXPOSURE [None]
  - FATIGUE [None]
  - HEADACHE [None]
  - INCORRECT DOSE ADMINISTERED [None]
  - NIGHTMARE [None]
